FAERS Safety Report 24166143 (Version 1)
Quarter: 2024Q3

REPORT INFORMATION
  Report Type: Report from Study
  Country: US (occurrence: None)
  Receive Date: 20240802
  Receipt Date: 20240802
  Transmission Date: 20241016
  Serious: Yes (Other)
  Sender: ASTRAZENECA
  Company Number: 2023A215962

PATIENT

DRUGS (1)
  1. FASENRA [Suspect]
     Active Substance: BENRALIZUMAB
     Route: 058

REACTIONS (15)
  - Adrenocortical insufficiency acute [Unknown]
  - Hiatus hernia [Unknown]
  - Gastrooesophageal reflux disease [Unknown]
  - Insomnia [Unknown]
  - Dyspnoea [Unknown]
  - Dysphonia [Unknown]
  - Nerve compression [Unknown]
  - Loss of consciousness [Unknown]
  - Fall [Unknown]
  - Limb injury [Unknown]
  - Epistaxis [Unknown]
  - COVID-19 [Unknown]
  - Pleural effusion [Unknown]
  - Lymphoedema [Unknown]
  - Rheumatoid arthritis [Unknown]
